FAERS Safety Report 7587678-9 (Version None)
Quarter: 2011Q3

REPORT INFORMATION
  Report Type: 
  Country: None (occurrence: None)
  Receive Date: 20110704
  Receipt Date: 20110629
  Transmission Date: 20111222
  Serious: Yes (Death, Hospitalization, Other)
  Sender: FDA-Public Use
  Company Number: PHHY2011CH42639

PATIENT
  Sex: Female
  Weight: 38 kg

DRUGS (1)
  1. EXELON [Suspect]
     Dosage: UNK UKN, UNK

REACTIONS (5)
  - LUNG INFILTRATION [None]
  - WHEEZING [None]
  - DEATH [None]
  - PLEURAL EFFUSION [None]
  - DYSPNOEA [None]
